FAERS Safety Report 8487473 (Version 2)
Quarter: 2013Q2

REPORT INFORMATION
  Report Type: Spontaneous
  Country: DK (occurrence: DK)
  Receive Date: 20120402
  Receipt Date: 20130503
  Transmission Date: 20140414
  Serious: Yes (Other)
  Sender: FDA-Public Use
  Company Number: DK-PFIZER INC-2012080777

PATIENT
  Age: 60 Year
  Sex: Male
  Weight: 78 kg

DRUGS (4)
  1. CHAMPIX [Suspect]
     Indication: SMOKING CESSATION THERAPY
     Dosage: 0.5 MG, UNK
     Dates: start: 20100829
  2. CHAMPIX [Suspect]
     Dosage: 1 MG, UNK
  3. CHAMPIX [Suspect]
     Dosage: 1 MG, 2X/DAY
     Route: 048
     Dates: end: 201107
  4. LITAREX [Concomitant]
     Indication: BIPOLAR I DISORDER
     Dosage: 6 MMOL, 2 TABLETS DAILY
     Route: 048
     Dates: start: 19850901, end: 20120319

REACTIONS (3)
  - Tremor [Unknown]
  - Mental status changes [Unknown]
  - Memory impairment [Unknown]
